FAERS Safety Report 5243259-3 (Version None)
Quarter: 2007Q1

REPORT INFORMATION
  Report Type: 
  Country: None (occurrence: None)
  Receive Date: 20070221
  Receipt Date: 20070213
  Transmission Date: 20070707
  Serious: Yes (Other)
  Sender: FDA-Public Use
  Company Number: JP-PFIZER INC-2007009724

PATIENT
  Age: 60 Year
  Sex: Female
  Weight: 59.2 kg

DRUGS (13)
  1. ZOLOFT [Suspect]
     Indication: DEPRESSION
     Route: 048
     Dates: start: 20061206, end: 20070128
  2. AMOXAN [Concomitant]
     Route: 048
  3. TOFRANIL [Concomitant]
     Route: 048
  4. RESLIN [Concomitant]
     Route: 048
  5. MIRADOL [Concomitant]
     Route: 048
  6. ETIZOLAM [Concomitant]
     Route: 048
  7. HALCION [Concomitant]
     Route: 048
     Dates: start: 20060718
  8. SILECE [Concomitant]
     Route: 048
  9. DORAL [Concomitant]
     Route: 048
     Dates: start: 20060527
  10. BIPERIDEN HYDROCHLORIDE [Concomitant]
     Route: 048
  11. LEXOTAN [Concomitant]
     Route: 048
     Dates: start: 20060527
  12. MAGNESIUM OXIDE [Concomitant]
     Route: 048
  13. LAXOBERON [Concomitant]
     Route: 048
     Dates: start: 20060605

REACTIONS (6)
  - CONTUSION [None]
  - DEPRESSION [None]
  - DISORIENTATION [None]
  - DRUG INEFFECTIVE [None]
  - HEAD INJURY [None]
  - LOSS OF CONSCIOUSNESS [None]
